FAERS Safety Report 7528790-X (Version None)
Quarter: 2011Q2

REPORT INFORMATION
  Report Type: 
  Country: None (occurrence: None)
  Receive Date: 20110607
  Receipt Date: 20101025
  Transmission Date: 20111010
  Serious: No
  Sender: FDA-Public Use
  Company Number: US-ASTRAZENECA-2010SE51550

PATIENT
  Age: 51 Year
  Sex: Female

DRUGS (4)
  1. PRILOSEC OTC [Suspect]
     Route: 048
     Dates: start: 20101024, end: 20101024
  2. FLONASE [Concomitant]
     Dosage: UNKNOWN.
  3. ZOLOFT [Concomitant]
     Dosage: UNKNOWN.
  4. ADVAIR DISKUS 100/50 [Concomitant]
     Dosage: UNKNOWN.

REACTIONS (5)
  - FEELING HOT [None]
  - CONDITION AGGRAVATED [None]
  - NAUSEA [None]
  - DIZZINESS [None]
  - DYSPNOEA [None]
